FAERS Safety Report 22336213 (Version 1)
Quarter: 2023Q2

REPORT INFORMATION
  Report Type: Spontaneous
  Country: US (occurrence: US)
  Receive Date: 20230518
  Receipt Date: 20230518
  Transmission Date: 20230721
  Serious: No
  Sender: FDA-Public Use
  Company Number: US-009507513-2305USA000937

PATIENT
  Sex: Female

DRUGS (2)
  1. KEYTRUDA [Suspect]
     Active Substance: PEMBROLIZUMAB
     Indication: Triple negative breast cancer
     Route: 042
  2. CARBOPLATIN [Concomitant]
     Active Substance: CARBOPLATIN

REACTIONS (6)
  - Pyrexia [Unknown]
  - Dyspnoea [Unknown]
  - Neurological symptom [Unknown]
  - Hepatic enzyme increased [Unknown]
  - Gait inability [Unknown]
  - Steroid therapy [Unknown]
